FAERS Safety Report 8458570-2 (Version None)
Quarter: 2012Q2

REPORT INFORMATION
  Report Type: 
  Country: None (occurrence: None)
  Receive Date: 20120622
  Receipt Date: 20120620
  Transmission Date: 20120825
  Serious: No
  Sender: FDA-Public Use
  Company Number: US-PFIZER INC-2012149391

PATIENT
  Sex: Female
  Weight: 81.633 kg

DRUGS (2)
  1. LYRICA [Suspect]
     Indication: NEUROPATHY PERIPHERAL
     Dosage: 50 MG, 1X/DAY
     Route: 048
     Dates: start: 20120513, end: 20120601
  2. EFFEXOR [Concomitant]
     Dosage: 250 MG, UNK

REACTIONS (1)
  - PHOTOSENSITIVITY REACTION [None]
